FAERS Safety Report 23053488 (Version 1)
Quarter: 2023Q4

REPORT INFORMATION
  Report Type: Spontaneous
  Country: US (occurrence: US)
  Receive Date: 20231011
  Receipt Date: 20231011
  Transmission Date: 20240109
  Serious: Yes (Hospitalization)
  Sender: FDA-Public Use
  Company Number: US-drreddys-LIT/USA/23/0179313

PATIENT
  Age: 23 Year
  Sex: Female

DRUGS (11)
  1. DAPTOMYCIN [Suspect]
     Active Substance: DAPTOMYCIN
     Indication: Bacteraemia
  2. LEVOFLOXACIN [Suspect]
     Active Substance: LEVOFLOXACIN
     Indication: Infection prophylaxis
  3. VALACYCLOVIR [Suspect]
     Active Substance: VALACYCLOVIR HYDROCHLORIDE
     Indication: Infection prophylaxis
  4. ATOVAQUONE [Suspect]
     Active Substance: ATOVAQUONE
     Indication: Infection prophylaxis
  5. MICAFUNGIN [Suspect]
     Active Substance: MICAFUNGIN SODIUM
     Indication: Infection prophylaxis
  6. IBRUTINIB [Suspect]
     Active Substance: IBRUTINIB
     Indication: B-cell type acute leukaemia
  7. IBRUTINIB [Suspect]
     Active Substance: IBRUTINIB
     Indication: Metastases to meninges
  8. VENETOCLAX [Suspect]
     Active Substance: VENETOCLAX
     Indication: B-cell type acute leukaemia
  9. VENETOCLAX [Suspect]
     Active Substance: VENETOCLAX
     Indication: Metastases to meninges
  10. MEROPENEM [Suspect]
     Active Substance: MEROPENEM
     Indication: Bacteraemia
  11. AMPHOTERICIN B [Concomitant]
     Active Substance: AMPHOTERICIN B
     Indication: Systemic candida

REACTIONS (3)
  - Candida infection [Unknown]
  - Enterococcal infection [Unknown]
  - Drug ineffective [Unknown]
